FAERS Safety Report 9795036 (Version 2)
Quarter: 2014Q3

REPORT INFORMATION
  Report Type: Report from Study
  Country: FR (occurrence: FR)
  Receive Date: 20140102
  Receipt Date: 20140723
  Transmission Date: 20150326
  Serious: Yes (Hospitalization)
  Sender: FDA-Public Use
  Company Number: FR-ROCHE-1327555

PATIENT
  Sex: Male

DRUGS (9)
  1. PACLITAXEL. [Suspect]
     Active Substance: PACLITAXEL
     Indication: NON-SMALL CELL LUNG CANCER METASTATIC
     Dosage: LAST DOSE PRIOR TO THE EVENT CATHETER INFECTION SUSPICION: 26/AUG/2013?LAST DOSE PRIOR TO THE EVENT
     Route: 042
     Dates: start: 20130708
  2. SKENAN [Concomitant]
     Active Substance: MORPHINE SULFATE
  3. FRAGMINE [Concomitant]
     Active Substance: DALTEPARIN SODIUM
     Route: 065
  4. IMOVANE [Concomitant]
     Active Substance: ZOPICLONE
  5. ACTISKENAN [Concomitant]
     Active Substance: MORPHINE SULFATE
  6. BISOCE [Concomitant]
     Active Substance: BISOPROLOL
     Route: 065
  7. SOLUPRED (FRANCE) [Concomitant]
     Active Substance: PREDNISOLONE
     Route: 065
  8. PRIMPERAN [Concomitant]
     Active Substance: METOCLOPRAMIDE HYDROCHLORIDE
     Route: 065
  9. BEVACIZUMAB [Suspect]
     Active Substance: BEVACIZUMAB
     Indication: NON-SMALL CELL LUNG CANCER METASTATIC
     Dosage: LAST DOSE PRIOR TO THE EVENT CATHETER INFECTION SUSPICION: 26/AUG/2013?LAST DOSE PRIOR TO THE EVENT
     Route: 042
     Dates: start: 20130708

REACTIONS (2)
  - Device related infection [Not Recovered/Not Resolved]
  - Atrial fibrillation [Recovered/Resolved]

NARRATIVE: CASE EVENT DATE: 20130901
